FAERS Safety Report 20461086 (Version 2)
Quarter: 2022Q4

REPORT INFORMATION
  Report Type: Spontaneous
  Country: US (occurrence: US)
  Receive Date: 20220211
  Receipt Date: 20221212
  Transmission Date: 20230113
  Serious: No
  Sender: FDA-Public Use
  Company Number: US-FERRINGPH-2021FE06986

PATIENT
  Age: 35 Year
  Sex: Male
  Weight: 131.52 kg

DRUGS (3)
  1. MENOPUR [Suspect]
     Active Substance: FOLLITROPIN\LUTEINIZING HORMONE
     Indication: Infertility male
     Dosage: UNK
     Route: 065
     Dates: start: 202110
  2. NOVAREL [Concomitant]
     Active Substance: CHORIOGONADOTROPIN ALFA
     Indication: Sperm concentration decreased
     Dosage: UNK
     Route: 065
     Dates: start: 202108
  3. NOVAREL [Concomitant]
     Active Substance: CHORIOGONADOTROPIN ALFA
     Dosage: ^DOUBLED THE DOSE^
     Route: 065

REACTIONS (4)
  - Blood testosterone decreased [Unknown]
  - Drug ineffective for unapproved indication [Unknown]
  - Product use in unapproved indication [Unknown]
  - Off label use [Unknown]

NARRATIVE: CASE EVENT DATE: 20210101
